FAERS Safety Report 4443581-4 (Version None)
Quarter: 2004Q3

REPORT INFORMATION
  Report Type: 
  Country: None (occurrence: None)
  Receive Date: 20040908
  Receipt Date: 20040902
  Transmission Date: 20050211
  Serious: Yes (Hospitalization)
  Sender: FDA-Public Use
  Company Number: PHRM2004FR02692

PATIENT
  Age: 76 Year
  Sex: Male
  Weight: 60 kg

DRUGS (4)
  1. LESCOL [Suspect]
     Dosage: 20 MG/DAY
     Route: 048
     Dates: start: 19970615, end: 20040618
  2. TIMOPTIC [Suspect]
  3. TRIATEC [Suspect]
     Dosage: 2.5 MG/DAY
     Route: 048
  4. ASPIRIN [Suspect]
     Dosage: 160 MG/DAY
     Route: 048

REACTIONS (3)
  - INTERSTITIAL LUNG DISEASE [None]
  - PNEUMONITIS [None]
  - WEIGHT DECREASED [None]
